FAERS Safety Report 6546573-4 (Version None)
Quarter: 2010Q1

REPORT INFORMATION
  Report Type: 
  Country: None (occurrence: None)
  Receive Date: 20100122
  Receipt Date: 20100115
  Transmission Date: 20100710
  Serious: Yes (Death, Other)
  Sender: FDA-Public Use
  Company Number: DE-AMGEN-STX366259

PATIENT
  Sex: Male
  Weight: 57 kg

DRUGS (9)
  1. MIMPARA [Suspect]
     Indication: HYPERPARATHYROIDISM SECONDARY
     Dates: start: 20050720, end: 20080704
  2. FENISTIL [Concomitant]
     Dates: end: 20081006
  3. RENAGEL [Concomitant]
     Dates: end: 20080320
  4. BISOPROLOL [Concomitant]
     Dates: start: 20080901, end: 20081006
  5. SODIUM BICARBONATE [Concomitant]
     Dates: start: 20070502, end: 20081006
  6. CALCIUM ACETATE [Concomitant]
     Dates: start: 20080523, end: 20081006
  7. NEXIUM [Concomitant]
     Dates: start: 20071205, end: 20081006
  8. FOSRENOL [Concomitant]
     Dates: start: 20080704, end: 20081006
  9. DEKRISTOL [Concomitant]
     Dates: start: 20081006, end: 20081006

REACTIONS (9)
  - ARTHRALGIA [None]
  - BONE PAIN [None]
  - CARDIOMEGALY [None]
  - DISEASE COMPLICATION [None]
  - GAIT DISTURBANCE [None]
  - GENERAL PHYSICAL HEALTH DETERIORATION [None]
  - HIGH TURNOVER OSTEOPATHY [None]
  - MUSCULAR WEAKNESS [None]
  - REFRACTORY ANAEMIA [None]
